FAERS Safety Report 11257936 (Version 3)
Quarter: 2015Q3

REPORT INFORMATION
  Report Type: Spontaneous
  Country: US (occurrence: US)
  Receive Date: 20150710
  Receipt Date: 20150925
  Transmission Date: 20151125
  Serious: Yes (Hospitalization, Other)
  Sender: FDA-Public Use
  Company Number: US-009507513-1506USA007742

PATIENT
  Age: 22 Year
  Sex: Female
  Weight: 106.12 kg

DRUGS (1)
  1. IMPLANON [Suspect]
     Active Substance: ETONOGESTREL
     Indication: CONTRACEPTION
     Dosage: UNK
     Route: 059
     Dates: start: 20130423, end: 20150714

REACTIONS (5)
  - Device deployment issue [Recovered/Resolved]
  - General anaesthesia [Unknown]
  - Device dislocation [Recovered/Resolved]
  - Medical device complication [Recovered/Resolved]
  - Surgery [Unknown]

NARRATIVE: CASE EVENT DATE: 20130423
